FAERS Safety Report 22007115 (Version 5)
Quarter: 2023Q2

REPORT INFORMATION
  Report Type: Spontaneous
  Country: ID (occurrence: ID)
  Receive Date: 20230217
  Receipt Date: 20230508
  Transmission Date: 20230722
  Serious: Yes (Hospitalization)
  Sender: FDA-Public Use
  Company Number: ID-009507513-2302IDN001791

PATIENT
  Age: 17 Month
  Sex: Male
  Weight: 9.1 kg

DRUGS (2)
  1. VARIVAX [Suspect]
     Active Substance: VARICELLA-ZOSTER VIRUS STRAIN OKA/MERCK LIVE ANTIGEN
     Indication: Prophylaxis
     Dates: start: 20230128
  2. STERILE DILUENT (WATER) [Suspect]
     Active Substance: WATER
     Dosage: UNK
     Dates: start: 20230128

REACTIONS (3)
  - Papule [Unknown]
  - Nodule [Unknown]
  - Pyrexia [Unknown]

NARRATIVE: CASE EVENT DATE: 20230131
